FAERS Safety Report 9129071 (Version 1)
Quarter: 2013Q1

REPORT INFORMATION
  Report Type: Spontaneous
  Country: GB (occurrence: GB)
  Receive Date: 20130125
  Receipt Date: 20130125
  Transmission Date: 20140127
  Serious: Yes (Hospitalization)
  Sender: FDA-Public Use
  Company Number: GB-ELI_LILLY_AND_COMPANY-GB201301006501

PATIENT
  Age: 57 Year
  Sex: Male

DRUGS (6)
  1. PRASUGREL HYDROCHLORIDE [Suspect]
     Indication: STENT PLACEMENT
     Dosage: 10 MG, UNK
     Route: 048
     Dates: start: 201111
  2. ASPIRIN [Concomitant]
  3. BISOPROLOL [Concomitant]
  4. EZETIMIBE [Concomitant]
  5. PRAVASTATIN [Concomitant]
  6. RAMIPRIL [Concomitant]

REACTIONS (2)
  - Haematoma [Recovering/Resolving]
  - Mediastinal mass [Recovering/Resolving]
